FAERS Safety Report 20958169 (Version 2)
Quarter: 2024Q3

REPORT INFORMATION
  Report Type: Spontaneous
  Country: US (occurrence: US)
  Receive Date: 20220614
  Receipt Date: 20240715
  Transmission Date: 20241017
  Serious: No
  Sender: PIERRE FABRE MEDICAMENT
  Company Number: US-PFM-2021-05667

PATIENT
  Age: 7 Week
  Sex: Female

DRUGS (1)
  1. PROPRANOLOL [Suspect]
     Active Substance: PROPRANOLOL HYDROCHLORIDE
     Indication: Infantile haemangioma
     Dosage: 2 MG/KG, QD (1/DAY)
     Route: 065

REACTIONS (3)
  - Product use issue [Unknown]
  - Drug titration error [Unknown]
  - Off label use [Unknown]
